FAERS Safety Report 18993219 (Version 1)
Quarter: 2021Q1

REPORT INFORMATION
  Report Type: Spontaneous
  Country: GB (occurrence: GB)
  Receive Date: 20210310
  Receipt Date: 20210310
  Transmission Date: 20210420
  Serious: Yes (Other)
  Sender: FDA-Public Use
  Company Number: GB-TEVA-2021-GB-1885966

PATIENT
  Age: 63 Year
  Sex: Male
  Weight: 65 kg

DRUGS (13)
  1. AZATHIOPRINE. [Concomitant]
     Active Substance: AZATHIOPRINE
  2. INSULIN LISPRO [Concomitant]
     Active Substance: INSULIN LISPRO
  3. COTRIMOXAZOLE [Concomitant]
     Active Substance: SULFAMETHOXAZOLE\TRIMETHOPRIM
  4. ACETAZOLAMIDE. [Suspect]
     Active Substance: ACETAZOLAMIDE
     Indication: ANGLE CLOSURE GLAUCOMA
     Dosage: 375 MILLIGRAM DAILY;
     Route: 048
  5. ACETAZOLAMIDE. [Suspect]
     Active Substance: ACETAZOLAMIDE
     Dosage: 750 MILLIGRAM DAILY;
     Route: 048
     Dates: start: 20210127
  6. ASPIRIN COATED [Concomitant]
     Active Substance: ASPIRIN
  7. CALCICHEW D3 [Concomitant]
     Active Substance: CALCIUM\CHOLECALCIFEROL
  8. NEORAL [Concomitant]
     Active Substance: CYCLOSPORINE
  9. PREDNISOLONE. [Concomitant]
     Active Substance: PREDNISOLONE
  10. RISEDRONATE [Concomitant]
     Active Substance: RISEDRONATE SODIUM
  11. ACETAZOLAMIDE. [Suspect]
     Active Substance: ACETAZOLAMIDE
     Dosage: 250 MILLIGRAM DAILY;
     Route: 048
     Dates: end: 20210221
  12. LEVOTHYROXINE SODIUM. [Concomitant]
     Active Substance: LEVOTHYROXINE SODIUM
  13. INSULIN GLARGINE [Concomitant]
     Active Substance: INSULIN GLARGINE

REACTIONS (4)
  - Blood glucose increased [Unknown]
  - Dyspnoea [Recovering/Resolving]
  - Cognitive disorder [Unknown]
  - Oxygen saturation decreased [Unknown]

NARRATIVE: CASE EVENT DATE: 20210127
